FAERS Safety Report 7861576 (Version 3)
Quarter: 2014Q2

REPORT INFORMATION
  Report Type: Spontaneous
  Country: US (occurrence: None)
  Receive Date: 20110218
  Receipt Date: 20140604
  Transmission Date: 20141212
  Serious: Yes (Hospitalization)
  Sender: FDA-Public Use
  Company Number: 20101219CINRY1744

PATIENT
  Age: 28 Year
  Sex: Female

DRUGS (11)
  1. CINRYZE [Suspect]
     Indication: HEREDITARY ANGIOEDEMA
     Dosage: (1000 UNIT 2 IN 1 WK), INTRAVENOUS
     Route: 042
     Dates: start: 201011
  2. CINRYZE [Suspect]
     Dosage: (1000 UNIT 2 IN 1 WK), INTRAVENOUS
     Route: 042
     Dates: start: 201011
  3. AMITRIPTYLINE HYDROCHLORIDE [Concomitant]
  4. OXYCODONE (OXYCODONE) [Concomitant]
  5. XANAX [Concomitant]
  6. AMBIEN [Concomitant]
  7. ZOLOFT [Concomitant]
  8. MORPHINE [Concomitant]
  9. RISPERDAL [Concomitant]
  10. OPANA [Concomitant]
  11. OBETROL [Concomitant]

REACTIONS (4)
  - Hereditary angioedema [None]
  - Stress [None]
  - Angioedema [None]
  - Condition aggravated [None]
